FAERS Safety Report 16225857 (Version 2)
Quarter: 2019Q2

REPORT INFORMATION
  Report Type: Report from Study
  Country: US (occurrence: US)
  Receive Date: 20190422
  Receipt Date: 20190528
  Transmission Date: 20190711
  Serious: No
  Sender: FDA-Public Use
  Company Number: PHEH2019US017076

PATIENT
  Sex: Female

DRUGS (1)
  1. KISQALI [Suspect]
     Active Substance: RIBOCICLIB
     Indication: BREAST CANCER
     Dosage: 600 MG, QD
     Route: 048

REACTIONS (5)
  - Fatigue [Unknown]
  - Abdominal discomfort [Unknown]
  - Electrocardiogram abnormal [Unknown]
  - Pain in extremity [Unknown]
  - Myalgia [Unknown]
